FAERS Safety Report 14149851 (Version 1)
Quarter: 2017Q4

REPORT INFORMATION
  Report Type: Report from Study
  Country: US (occurrence: US)
  Receive Date: 20171101
  Receipt Date: 20171101
  Transmission Date: 20180321
  Serious: Yes (Other)
  Sender: FDA-Public Use
  Company Number: US-SA-2016SA128709

PATIENT
  Age: 46 Year
  Sex: Female

DRUGS (1)
  1. LEMTRADA [Suspect]
     Active Substance: ALEMTUZUMAB
     Indication: MULTIPLE SCLEROSIS
     Route: 041
     Dates: start: 20160627, end: 20160701

REACTIONS (19)
  - Hypothalamo-pituitary disorder [Unknown]
  - Movement disorder [Recovered/Resolved]
  - Fall [Unknown]
  - Contusion [Unknown]
  - Arthralgia [Recovered/Resolved]
  - Immune system disorder [Recovered/Resolved]
  - Fatigue [Not Recovered/Not Resolved]
  - Feeling hot [Not Recovered/Not Resolved]
  - Pain [Recovered/Resolved]
  - Tooth abscess [Recovered/Resolved]
  - Thyroid disorder [Not Recovered/Not Resolved]
  - Dental restoration failure [Recovered/Resolved]
  - Nightmare [Not Recovered/Not Resolved]
  - Constipation [Recovered/Resolved]
  - Acne [Not Recovered/Not Resolved]
  - Palpitations [Unknown]
  - Infection [Unknown]
  - Night sweats [Not Recovered/Not Resolved]
  - Weight increased [Unknown]

NARRATIVE: CASE EVENT DATE: 2016
